FAERS Safety Report 24622345 (Version 3)
Quarter: 2025Q2

REPORT INFORMATION
  Report Type: Spontaneous
  Country: US (occurrence: US)
  Receive Date: 20241115
  Receipt Date: 20250519
  Transmission Date: 20250716
  Serious: Yes (Other)
  Sender: SANOFI AVENTIS
  Company Number: US-SA-2024SA326575

PATIENT
  Age: 64 Year
  Sex: Female

DRUGS (7)
  1. DUPIXENT [Suspect]
     Active Substance: DUPILUMAB
     Indication: Dyshidrotic eczema
     Dosage: 300 MG, QOW
     Route: 058
  2. DUPIXENT [Suspect]
     Active Substance: DUPILUMAB
     Indication: Dermatitis atopic
  3. JANUVIA [Concomitant]
     Active Substance: SITAGLIPTIN PHOSPHATE
  4. JARDIANCE [Concomitant]
     Active Substance: EMPAGLIFLOZIN
  5. TRULICITY [Concomitant]
     Active Substance: DULAGLUTIDE
  6. RINVOQ [Concomitant]
     Active Substance: UPADACITINIB
  7. ORENCIA [Concomitant]
     Active Substance: ABATACEPT

REACTIONS (14)
  - Diabetes mellitus [Unknown]
  - Diabetic neuropathy [Unknown]
  - Skin fissures [Unknown]
  - Alopecia [Unknown]
  - Rebound eczema [Unknown]
  - Skin haemorrhage [Unknown]
  - Skin swelling [Unknown]
  - Pain [Unknown]
  - Arthritis [Unknown]
  - Pain in extremity [Unknown]
  - Joint range of motion decreased [Unknown]
  - Dry eye [Unknown]
  - Loss of personal independence in daily activities [Unknown]
  - Product use in unapproved indication [Unknown]

NARRATIVE: CASE EVENT DATE: 20250101
